FAERS Safety Report 5041514-3 (Version None)
Quarter: 2006Q2

REPORT INFORMATION
  Report Type: 
  Country: None (occurrence: None)
  Receive Date: 20060627
  Receipt Date: 20060619
  Transmission Date: 20061013
  Serious: Yes (Other)
  Sender: FDA-Public Use
  Company Number: 200612591BCC

PATIENT
  Age: 62 Year
  Sex: Female
  Weight: 68.4932 kg

DRUGS (6)
  1. GENUINE BAYER TABLETS (ACETYLSALICYLIC ACID) [Suspect]
     Indication: ISCHAEMIC HEART DISEASE PROPHYLAXIS
     Dosage: 325 MG QD ORAL
     Route: 048
     Dates: start: 20060124
  2. LIPITOR [Concomitant]
  3. HYZAAR [Concomitant]
  4. GLUCOVANCE [Concomitant]
  5. ALTACE [Concomitant]
  6. COREG [Concomitant]

REACTIONS (4)
  - ABDOMINAL DISTENSION [None]
  - HYPERTROPHY BREAST [None]
  - MYOCARDIAL INFARCTION [None]
  - VAGINAL DISCHARGE [None]
